FAERS Safety Report 19315710 (Version 2)
Quarter: 2021Q4

REPORT INFORMATION
  Report Type: Report from Study
  Country: None (occurrence: CA)
  Receive Date: 20210528
  Receipt Date: 20211020
  Transmission Date: 20220303
  Serious: Yes (Other)
  Sender: FDA-Public Use
  Company Number: CA-ABBVIE-21K-028-3922714-00

PATIENT
  Age: 49 Year
  Sex: Female

DRUGS (1)
  1. RINVOQ [Suspect]
     Active Substance: UPADACITINIB
     Indication: Rheumatoid arthritis
     Route: 048
     Dates: start: 20210101

REACTIONS (12)
  - Systemic lupus erythematosus [Unknown]
  - Chest pain [Not Recovered/Not Resolved]
  - Joint instability [Unknown]
  - Foot fracture [Unknown]
  - Sleep disorder [Unknown]
  - Sciatica [Recovering/Resolving]
  - Loss of personal independence in daily activities [Unknown]
  - Impaired healing [Unknown]
  - Rib fracture [Recovering/Resolving]
  - Fall [Recovering/Resolving]
  - Mobility decreased [Unknown]
  - Fatigue [Recovering/Resolving]

NARRATIVE: CASE EVENT DATE: 20210101
